FAERS Safety Report 5136933-0 (Version None)
Quarter: 2006Q4

REPORT INFORMATION
  Report Type: 
  Country: None (occurrence: None)
  Receive Date: 20061023
  Receipt Date: 20061009
  Transmission Date: 20070319
  Serious: Yes (Hospitalization)
  Sender: FDA-Public Use
  Company Number: 2006124240

PATIENT
  Age: 51 Year
  Sex: Female

DRUGS (1)
  1. SUTENT [Suspect]
     Indication: RENAL CELL CARCINOMA STAGE UNSPECIFIED
     Dosage: 50 MG (50 MG, 1 IN 1 D), ORAL
     Route: 048
     Dates: start: 20051202, end: 20060710

REACTIONS (10)
  - ABDOMINAL PAIN [None]
  - CONVULSION [None]
  - DISEASE PROGRESSION [None]
  - ENTEROVESICAL FISTULA [None]
  - GASTROINTESTINAL HAEMORRHAGE [None]
  - GENERAL PHYSICAL HEALTH DETERIORATION [None]
  - NAUSEA [None]
  - RENAL CELL CARCINOMA STAGE UNSPECIFIED [None]
  - RESPIRATORY ARREST [None]
  - VOMITING [None]
